FAERS Safety Report 6894192-2 (Version None)
Quarter: 2010Q3

REPORT INFORMATION
  Report Type: 
  Country: None (occurrence: None)
  Receive Date: 20100802
  Receipt Date: 20100721
  Transmission Date: 20110219
  Serious: Yes (Death)
  Sender: FDA-Public Use
  Company Number: NZ-WYE-G06443910

PATIENT
  Sex: Male

DRUGS (3)
  1. VENLAFAXINE HYDROCHLORIDE [Suspect]
  2. BACLOFEN [Concomitant]
     Indication: MUSCLE SPASTICITY
     Dosage: ^HALF^
     Route: 037
  3. PREGABALIN [Suspect]
     Indication: NEURALGIA
     Dosage: STARTING WITH 75MG AND INCREASED TO 150MG BD OVER A PERIOD OF 4 WEEKS

REACTIONS (2)
  - COMPLETED SUICIDE [None]
  - GUN SHOT WOUND [None]
